FAERS Safety Report 16134184 (Version 1)
Quarter: 2019Q1

REPORT INFORMATION
  Report Type: Report from Study
  Country: IT (occurrence: IT)
  Receive Date: 20190329
  Receipt Date: 20190329
  Transmission Date: 20190418
  Serious: Yes (Hospitalization, Other)
  Sender: FDA-Public Use
  Company Number: IT-MYLANLABS-2019M1028767

PATIENT
  Age: 79 Year
  Sex: Female

DRUGS (7)
  1. ALPRAZOLAM. [Concomitant]
     Active Substance: ALPRAZOLAM
  2. LAMICTAL [Concomitant]
     Active Substance: LAMOTRIGINE
  3. EFEXOR [Concomitant]
     Active Substance: VENLAFAXINE HYDROCHLORIDE
  4. ARIXTRA [Suspect]
     Active Substance: FONDAPARINUX SODIUM
     Indication: THROMBOSIS PROPHYLAXIS
     Dosage: 1 DOSAGE FORM, QD
     Route: 058
     Dates: start: 20180731, end: 20180814
  5. EUTIROXIN [Concomitant]
  6. PANTORC [Concomitant]
     Active Substance: PANTOPRAZOLE SODIUM
  7. FOLINA                             /00566702/ [Concomitant]

REACTIONS (4)
  - Intra-abdominal haematoma [Recovering/Resolving]
  - Rectal haemorrhage [Recovering/Resolving]
  - Incorrect dose administered [Unknown]
  - Haematuria [Recovering/Resolving]

NARRATIVE: CASE EVENT DATE: 20180813
